FAERS Safety Report 9449863 (Version 1)
Quarter: 2013Q3

REPORT INFORMATION
  Report Type: Report from Study
  Country: AR (occurrence: AR)
  Receive Date: 20130809
  Receipt Date: 20130809
  Transmission Date: 20140515
  Serious: Yes (Other)
  Sender: FDA-Public Use
  Company Number: PHHY2013AR085544

PATIENT
  Sex: Male

DRUGS (1)
  1. DIOVAN [Suspect]
     Indication: HYPERTENSION
     Dosage: 0.5 DF(320MG), BID(IN THE MORNING AND AT NIGHT)
     Route: 048
     Dates: start: 201206

REACTIONS (4)
  - Myocardial infarction [Recovered/Resolved]
  - Angiopathy [Not Recovered/Not Resolved]
  - Protein total decreased [Recovered/Resolved]
  - Wrong technique in drug usage process [Unknown]
